FAERS Safety Report 5871662-7 (Version None)
Quarter: 2008Q3

REPORT INFORMATION
  Report Type: 
  Country: None (occurrence: None)
  Receive Date: 20080905
  Receipt Date: 20080821
  Transmission Date: 20090109
  Serious: Yes (Other)
  Sender: FDA-Public Use
  Company Number: US-ELI_LILLY_AND_COMPANY-US200808005007

PATIENT
  Sex: Female

DRUGS (6)
  1. GEMZAR [Suspect]
     Indication: BREAST CANCER
     Dosage: 1000 MG/M2, OTHER
     Route: 042
  2. EPIRUBICIN [Concomitant]
     Indication: BREAST CANCER
     Dosage: 90 MG/M2, OTHER
     Route: 042
  3. PACLITAXEL [Concomitant]
     Indication: BREAST CANCER
     Dosage: 175 MG/M2, OTHER
     Route: 042
  4. DEXAMETHASONE TAB [Concomitant]
     Indication: PREMEDICATION
     Dosage: 20 MG, OTHER
  5. DIPHENHYDRAMINE HCL [Concomitant]
     Indication: PREMEDICATION
     Dosage: 50 MG, OTHER
     Route: 042
  6. RANITIDINE [Concomitant]
     Indication: PREMEDICATION
     Dosage: 50 MG, OTHER
     Route: 042

REACTIONS (12)
  - ASTHENIA [None]
  - DYSPHAGIA [None]
  - HYPERGLYCAEMIA [None]
  - HYPOCALCAEMIA [None]
  - HYPOKALAEMIA [None]
  - HYPONATRAEMIA [None]
  - HYPOPHOSPHATAEMIA [None]
  - HYPOXIA [None]
  - METABOLIC ALKALOSIS [None]
  - PNEUMONITIS [None]
  - PULMONARY FIBROSIS [None]
  - STOMATITIS [None]
